FAERS Safety Report 8602600-1 (Version None)
Quarter: 2012Q3

REPORT INFORMATION
  Report Type: 
  Country: None (occurrence: None)
  Receive Date: 20120817
  Receipt Date: 20120808
  Transmission Date: 20120928
  Serious: Yes (Other)
  Sender: FDA-Public Use
  Company Number: GB-AMGEN-GBRSP2012036593

PATIENT
  Age: 75 Year
  Sex: Female
  Weight: 76 kg

DRUGS (4)
  1. FOLIC ACID [Concomitant]
     Indication: RHEUMATOID ARTHRITIS
     Dosage: 6 X 5 MG (30 MG) WEEKLY
     Route: 048
  2. ENBREL [Suspect]
     Indication: RHEUMATOID ARTHRITIS
     Dosage: 50 MG, WEEKLY
     Route: 058
     Dates: start: 20120530, end: 20120530
  3. AMLODIPINE [Concomitant]
     Dosage: 5 MG, UNK
     Route: 048
  4. METHOTREXATE [Concomitant]
     Indication: RHEUMATOID ARTHRITIS
     Dosage: 7.5 MG, WEEKLY
     Route: 048

REACTIONS (13)
  - INSOMNIA [None]
  - VISION BLURRED [None]
  - SLEEP DISORDER [None]
  - NAUSEA [None]
  - ANXIETY [None]
  - URTICARIA [None]
  - INCREASED APPETITE [None]
  - WEIGHT INCREASED [None]
  - FATIGUE [None]
  - BURNING SENSATION [None]
  - THINKING ABNORMAL [None]
  - POLLAKIURIA [None]
  - PARAESTHESIA [None]
